FAERS Safety Report 8556231-2 (Version None)
Quarter: 2012Q3

REPORT INFORMATION
  Report Type: 
  Country: None (occurrence: None)
  Receive Date: 20120801
  Receipt Date: 20120718
  Transmission Date: 20120928
  Serious: Yes (Hospitalization, Other)
  Sender: FDA-Public Use
  Company Number: US-ELI_LILLY_AND_COMPANY-US201202004364

PATIENT
  Sex: Male
  Weight: 107.48 kg

DRUGS (20)
  1. OLANZAPINE [Suspect]
     Dosage: UNK, UNKNOWN
     Route: 030
     Dates: start: 20111006
  2. OLANZAPINE [Suspect]
     Dosage: UNK, UNKNOWN
     Route: 030
     Dates: start: 20120105
  3. OLANZAPINE [Suspect]
     Dosage: UNK, UNKNOWN
     Route: 030
     Dates: start: 20120126
  4. OLANZAPINE [Suspect]
     Dosage: UNK, UNKNOWN
     Route: 030
     Dates: start: 20111020
  5. OLANZAPINE [Suspect]
     Dosage: UNK, UNKNOWN
     Route: 030
     Dates: start: 20120119
  6. DEPAKOTE [Concomitant]
     Dosage: 500 MG, UNK
  7. HALOPERIDOL [Concomitant]
     Dosage: 5 MG, PRN
  8. OLANZAPINE [Suspect]
     Dosage: UNK, UNKNOWN
     Route: 030
     Dates: start: 20111201
  9. ZOLOFT [Concomitant]
     Dosage: 50 MG, UNK
     Route: 048
  10. MULTI-VITAMIN [Concomitant]
     Dosage: 1 DF, QD
     Route: 048
  11. OLANZAPINE [Suspect]
     Dosage: UNK, UNKNOWN
     Route: 030
     Dates: start: 20111103
  12. DEPAKOTE [Concomitant]
     Dosage: 1000 MG, EACH EVENING
  13. SINGULAIR [Concomitant]
     Dosage: 10 MG, UNK
     Route: 048
  14. OLANZAPINE [Suspect]
     Dosage: UNK, UNKNOWN
     Route: 030
     Dates: start: 20111117
  15. OLANZAPINE [Suspect]
     Dosage: UNK, UNKNOWN
     Route: 030
     Dates: start: 20111220
  16. ADVAIR DISKUS 100/50 [Concomitant]
     Dosage: UNK, BID
  17. COGENTIN [Concomitant]
     Dosage: 0.5 MG, BID
  18. OLANZAPINE [Suspect]
     Dosage: UNK, UNKNOWN
     Route: 030
     Dates: start: 20120202
  19. KLONOPIN [Concomitant]
     Dosage: 0.5 MG, UNK
  20. PEPCID [Concomitant]
     Dosage: 20 MG, UNK

REACTIONS (9)
  - ATAXIA [None]
  - DELIRIUM [None]
  - SEDATION [None]
  - AKATHISIA [None]
  - AGITATION [None]
  - DEPRESSED LEVEL OF CONSCIOUSNESS [None]
  - DYSARTHRIA [None]
  - CONFUSIONAL STATE [None]
  - DISORIENTATION [None]
